FAERS Safety Report 5136323-0 (Version None)
Quarter: 2006Q4

REPORT INFORMATION
  Report Type: 
  Country: None (occurrence: None)
  Receive Date: 20061027
  Receipt Date: 20061026
  Transmission Date: 20070319
  Serious: Yes (Other)
  Sender: FDA-Public Use
  Company Number: FR-GLAXOSMITHKLINE-B0443993A

PATIENT
  Age: 12 Year
  Sex: Female

DRUGS (1)
  1. CEFUROXIME [Suspect]
     Indication: SINUSITIS
     Route: 048
     Dates: start: 20061016, end: 20061020

REACTIONS (4)
  - ASPARTATE AMINOTRANSFERASE INCREASED [None]
  - GENERAL PHYSICAL HEALTH DETERIORATION [None]
  - NAUSEA [None]
  - NEUTROPENIA [None]
